FAERS Safety Report 23927716 (Version 2)
Quarter: 2024Q2

REPORT INFORMATION
  Report Type: Report from Study
  Country: US (occurrence: US)
  Receive Date: 20240531
  Receipt Date: 20240611
  Transmission Date: 20240716
  Serious: No
  Sender: FDA-Public Use
  Company Number: US-ALXN-202405USA001821US

PATIENT
  Age: 10 Year
  Sex: Female

DRUGS (1)
  1. STRENSIQ [Suspect]
     Active Substance: ASFOTASE ALFA
     Indication: Product used for unknown indication
     Dosage: 42 MILLIGRAM, TIW
     Route: 065

REACTIONS (7)
  - Headache [Unknown]
  - Pain [Unknown]
  - Fall [Unknown]
  - Vitamin B6 decreased [Unknown]
  - Rib fracture [Unknown]
  - Injection site bruising [Unknown]
  - Injection site pain [Unknown]

NARRATIVE: CASE EVENT DATE: 20240201
